FAERS Safety Report 6111762-X (Version None)
Quarter: 2009Q1

REPORT INFORMATION
  Report Type: 
  Country: None (occurrence: None)
  Receive Date: 20090311
  Receipt Date: 20080812
  Transmission Date: 20090719
  Serious: No
  Sender: FDA-Public Use
  Company Number: US-TYCO HEALTHCARE/MALLINCKRODT-T200801317

PATIENT

DRUGS (5)
  1. ANAFRANIL CAP [Suspect]
     Dosage: 50 MG, QD
  2. RESTORIL [Suspect]
     Dosage: 30 MG, QD (AT NIGHT)
  3. GEODON                             /01487002/ [Concomitant]
     Indication: ANXIETY
  4. FLUVOXAMINE MALEATE [Concomitant]
     Indication: DEPRESSION
  5. KLONOPIN [Concomitant]
     Indication: ANXIETY

REACTIONS (2)
  - BLOOD TEST ABNORMAL [None]
  - VITAMIN A INCREASED [None]
